FAERS Safety Report 24140195 (Version 1)
Quarter: 2024Q3

REPORT INFORMATION
  Report Type: Spontaneous
  Country: AU (occurrence: AU)
  Receive Date: 20240726
  Receipt Date: 20240726
  Transmission Date: 20241017
  Serious: Yes (Other)
  Sender: TEVA
  Company Number: AU-TEVA-VS-3222558

PATIENT
  Age: 86 Year
  Sex: Male

DRUGS (2)
  1. AZACITIDINE [Suspect]
     Active Substance: AZACITIDINE
     Indication: Product used for unknown indication
     Route: 065
  2. VENETOCLAX [Suspect]
     Active Substance: VENETOCLAX
     Indication: Product used for unknown indication
     Route: 065

REACTIONS (12)
  - Acute myeloid leukaemia [Unknown]
  - Anaemia [Unknown]
  - Back pain [Unknown]
  - Cytopenia [Unknown]
  - Febrile neutropenia [Unknown]
  - Neuropathy peripheral [Unknown]
  - Pneumocystis jirovecii infection [Unknown]
  - Pallor [Unknown]
  - Dyspnoea [Unknown]
  - Spinal stenosis [Unknown]
  - Pyrexia [Unknown]
  - Tooth abscess [Unknown]
